FAERS Safety Report 4387788-3 (Version None)
Quarter: 2004Q2

REPORT INFORMATION
  Report Type: 
  Country: None (occurrence: None)
  Receive Date: 20040623
  Receipt Date: 20040608
  Transmission Date: 20050107
  Serious: Yes (Hospitalization)
  Sender: FDA-Public Use
  Company Number: USA040669557

PATIENT
  Age: 78 Year
  Sex: Female
  Weight: 66 kg

DRUGS (10)
  1. FORTEO [Suspect]
     Indication: OSTEOPOROSIS
     Dosage: 20 UG/1 DAY
     Dates: start: 20030301
  2. FOSAMAX [Concomitant]
  3. NEXIUM [Concomitant]
  4. CALCIUM CARBONATE + VITAMIN D [Concomitant]
  5. LOTREL [Concomitant]
  6. ALBUTEROL [Concomitant]
  7. SINGULAIR [Concomitant]
  8. FLOVENT [Concomitant]
  9. LESCOL [Concomitant]
  10. MULTIVITAMIN [Concomitant]

REACTIONS (7)
  - CONSTIPATION [None]
  - FEELING ABNORMAL [None]
  - HAEMATEMESIS [None]
  - INSOMNIA [None]
  - NAUSEA [None]
  - URINARY TRACT INFECTION [None]
  - VASCULAR RUPTURE [None]
